FAERS Safety Report 9261390 (Version 1)
Quarter: 2013Q2

REPORT INFORMATION
  Report Type: Spontaneous
  Country: US (occurrence: US)
  Receive Date: 20130429
  Receipt Date: 20130429
  Transmission Date: 20140414
  Serious: Yes (Other)
  Sender: FDA-Public Use
  Company Number: US-PFIZER INC-2013133377

PATIENT
  Age: 50 Year
  Sex: Male
  Weight: 88.44 kg

DRUGS (3)
  1. LYRICA [Suspect]
     Indication: MULTIPLE SCLEROSIS
     Dosage: TAKING 75MG IN THE MORNING, 75MG IN THE AFTERNOON AND 375MG AT BED TIME
     Route: 048
  2. GABAPENTIN [Suspect]
     Indication: MULTIPLE SCLEROSIS
     Dosage: UNK
  3. CYMBALTA [Concomitant]
     Indication: PAIN
     Dosage: UNK

REACTIONS (2)
  - Weight increased [Unknown]
  - Off label use [Unknown]
